FAERS Safety Report 24841014 (Version 1)
Quarter: 2025Q1

REPORT INFORMATION
  Report Type: Spontaneous
  Country: US (occurrence: US)
  Receive Date: 20250114
  Receipt Date: 20250114
  Transmission Date: 20250409
  Serious: Yes (Other)
  Sender: PFIZER
  Company Number: US-PFIZER INC-202500005669

PATIENT
  Age: 77 Year
  Sex: Male
  Weight: 58.97 kg

DRUGS (3)
  1. VYNDAMAX [Suspect]
     Active Substance: TAFAMIDIS
     Indication: Cardiac amyloidosis
     Dosage: 61MG; TAKES ONE CAPSULE EVERY DAY BY MOUTH
     Route: 048
  2. PATISIRAN [Concomitant]
     Active Substance: PATISIRAN
     Indication: Cardiac amyloidosis
     Dates: start: 202412
  3. PATISIRAN [Concomitant]
     Active Substance: PATISIRAN
     Indication: Cardiomyopathy

REACTIONS (1)
  - Vitamin A decreased [Unknown]

NARRATIVE: CASE EVENT DATE: 20241226
